FAERS Safety Report 8620711-1 (Version None)
Quarter: 2012Q3

REPORT INFORMATION
  Report Type: 
  Country: None (occurrence: None)
  Receive Date: 20120816
  Receipt Date: 20120816
  Transmission Date: 20120928
  Serious: No
  Sender: FDA-Public Use
  Company Number: None

PATIENT
  Age: 31 Year
  Sex: Male

DRUGS (1)
  1. UP + UP BRAND KIDS SUNSCREEN LOTION SPF 50 [Suspect]
     Dates: start: 20120811, end: 20120811

REACTIONS (5)
  - RASH [None]
  - PRURITUS [None]
  - RASH ERYTHEMATOUS [None]
  - SWELLING [None]
  - URTICARIA [None]
